FAERS Safety Report 10416710 (Version 1)
Quarter: 2014Q3

REPORT INFORMATION
  Report Type: Spontaneous
  Country: GB (occurrence: US)
  Receive Date: 20140828
  Receipt Date: 20140828
  Transmission Date: 20150326
  Serious: Yes (Other)
  Sender: FDA-Public Use
  Company Number: GB-MYLAN-2014S1003087

PATIENT
  Age: 23 Year
  Sex: Male

DRUGS (2)
  1. CLORAZEPIC ACID [Suspect]
     Active Substance: CLORAZEPIC ACID
     Indication: EPILEPSY
     Dosage: 60 MG,QD
     Dates: start: 201312
  2. CLORAZEPIC ACID [Suspect]
     Active Substance: CLORAZEPIC ACID
     Indication: OFF LABEL USE

REACTIONS (3)
  - Drug ineffective for unapproved indication [Unknown]
  - Convulsion [Unknown]
  - Aura [Unknown]

NARRATIVE: CASE EVENT DATE: 201312
